FAERS Safety Report 24365246 (Version 1)
Quarter: 2024Q3

REPORT INFORMATION
  Report Type: Spontaneous
  Country: US (occurrence: US)
  Receive Date: 20240926
  Receipt Date: 20240926
  Transmission Date: 20241016
  Serious: No
  Sender: ELI LILLY AND CO
  Company Number: US-ELI_LILLY_AND_COMPANY-US202409011155

PATIENT
  Age: 72 Year
  Sex: Female

DRUGS (52)
  1. MOUNJARO [Interacting]
     Active Substance: TIRZEPATIDE
     Indication: Type 2 diabetes mellitus
     Dosage: 2.5 MG, UNKNOWN
     Route: 058
     Dates: start: 202307
  2. MOUNJARO [Interacting]
     Active Substance: TIRZEPATIDE
     Indication: Type 2 diabetes mellitus
     Dosage: 2.5 MG, UNKNOWN
     Route: 058
     Dates: start: 202307
  3. MOUNJARO [Interacting]
     Active Substance: TIRZEPATIDE
     Indication: Type 2 diabetes mellitus
     Dosage: 2.5 MG, UNKNOWN
     Route: 058
     Dates: start: 202307
  4. MOUNJARO [Interacting]
     Active Substance: TIRZEPATIDE
     Indication: Type 2 diabetes mellitus
     Dosage: 2.5 MG, UNKNOWN
     Route: 058
     Dates: start: 202307
  5. MOUNJARO [Interacting]
     Active Substance: TIRZEPATIDE
     Indication: Glycosylated haemoglobin
     Dosage: 2.5 MG, UNKNOWN
     Route: 058
     Dates: start: 2024
  6. MOUNJARO [Interacting]
     Active Substance: TIRZEPATIDE
     Indication: Glycosylated haemoglobin
     Dosage: 2.5 MG, UNKNOWN
     Route: 058
     Dates: start: 2024
  7. MOUNJARO [Interacting]
     Active Substance: TIRZEPATIDE
     Indication: Glycosylated haemoglobin
     Dosage: 2.5 MG, UNKNOWN
     Route: 058
     Dates: start: 2024
  8. MOUNJARO [Interacting]
     Active Substance: TIRZEPATIDE
     Indication: Glycosylated haemoglobin
     Dosage: 2.5 MG, UNKNOWN
     Route: 058
     Dates: start: 2024
  9. MOUNJARO [Interacting]
     Active Substance: TIRZEPATIDE
     Indication: Type 2 diabetes mellitus
     Dosage: 5 MG, UNKNOWN
     Route: 058
     Dates: start: 2023
  10. MOUNJARO [Interacting]
     Active Substance: TIRZEPATIDE
     Indication: Type 2 diabetes mellitus
     Dosage: 5 MG, UNKNOWN
     Route: 058
     Dates: start: 2023
  11. MOUNJARO [Interacting]
     Active Substance: TIRZEPATIDE
     Indication: Type 2 diabetes mellitus
     Dosage: 5 MG, UNKNOWN
     Route: 058
     Dates: start: 2023
  12. MOUNJARO [Interacting]
     Active Substance: TIRZEPATIDE
     Indication: Type 2 diabetes mellitus
     Dosage: 5 MG, UNKNOWN
     Route: 058
     Dates: start: 2023
  13. MOUNJARO [Interacting]
     Active Substance: TIRZEPATIDE
     Indication: Glycosylated haemoglobin
     Dosage: 5 MG, UNKNOWN
     Route: 058
     Dates: start: 2024
  14. MOUNJARO [Interacting]
     Active Substance: TIRZEPATIDE
     Indication: Glycosylated haemoglobin
     Dosage: 5 MG, UNKNOWN
     Route: 058
     Dates: start: 2024
  15. MOUNJARO [Interacting]
     Active Substance: TIRZEPATIDE
     Indication: Glycosylated haemoglobin
     Dosage: 5 MG, UNKNOWN
     Route: 058
     Dates: start: 2024
  16. MOUNJARO [Interacting]
     Active Substance: TIRZEPATIDE
     Indication: Glycosylated haemoglobin
     Dosage: 5 MG, UNKNOWN
     Route: 058
     Dates: start: 2024
  17. MOUNJARO [Interacting]
     Active Substance: TIRZEPATIDE
     Indication: Type 2 diabetes mellitus
     Dosage: 7.5 MG, UNKNOWN
     Route: 058
     Dates: start: 2023
  18. MOUNJARO [Interacting]
     Active Substance: TIRZEPATIDE
     Indication: Type 2 diabetes mellitus
     Dosage: 7.5 MG, UNKNOWN
     Route: 058
     Dates: start: 2023
  19. MOUNJARO [Interacting]
     Active Substance: TIRZEPATIDE
     Indication: Type 2 diabetes mellitus
     Dosage: 7.5 MG, UNKNOWN
     Route: 058
     Dates: start: 2023
  20. MOUNJARO [Interacting]
     Active Substance: TIRZEPATIDE
     Indication: Type 2 diabetes mellitus
     Dosage: 7.5 MG, UNKNOWN
     Route: 058
     Dates: start: 2023
  21. MOUNJARO [Interacting]
     Active Substance: TIRZEPATIDE
     Indication: Glycosylated haemoglobin
     Dosage: 7.5 MG, UNKNOWN
     Route: 058
     Dates: start: 2024
  22. MOUNJARO [Interacting]
     Active Substance: TIRZEPATIDE
     Indication: Glycosylated haemoglobin
     Dosage: 7.5 MG, UNKNOWN
     Route: 058
     Dates: start: 2024
  23. MOUNJARO [Interacting]
     Active Substance: TIRZEPATIDE
     Indication: Glycosylated haemoglobin
     Dosage: 7.5 MG, UNKNOWN
     Route: 058
     Dates: start: 2024
  24. MOUNJARO [Interacting]
     Active Substance: TIRZEPATIDE
     Indication: Glycosylated haemoglobin
     Dosage: 7.5 MG, UNKNOWN
     Route: 058
     Dates: start: 2024
  25. MOUNJARO [Interacting]
     Active Substance: TIRZEPATIDE
     Indication: Type 2 diabetes mellitus
     Dosage: 10 MG, UNKNOWN
     Route: 058
  26. MOUNJARO [Interacting]
     Active Substance: TIRZEPATIDE
     Indication: Type 2 diabetes mellitus
     Dosage: 10 MG, UNKNOWN
     Route: 058
  27. MOUNJARO [Interacting]
     Active Substance: TIRZEPATIDE
     Indication: Type 2 diabetes mellitus
     Dosage: 10 MG, UNKNOWN
     Route: 058
  28. MOUNJARO [Interacting]
     Active Substance: TIRZEPATIDE
     Indication: Type 2 diabetes mellitus
     Dosage: 10 MG, UNKNOWN
     Route: 058
  29. MOUNJARO [Interacting]
     Active Substance: TIRZEPATIDE
     Indication: Glycosylated haemoglobin
  30. MOUNJARO [Interacting]
     Active Substance: TIRZEPATIDE
     Indication: Glycosylated haemoglobin
  31. MOUNJARO [Interacting]
     Active Substance: TIRZEPATIDE
     Indication: Glycosylated haemoglobin
  32. MOUNJARO [Interacting]
     Active Substance: TIRZEPATIDE
     Indication: Glycosylated haemoglobin
  33. MOUNJARO [Interacting]
     Active Substance: TIRZEPATIDE
     Indication: Type 2 diabetes mellitus
     Dosage: 12.5 MG, UNKNOWN
     Route: 058
  34. MOUNJARO [Interacting]
     Active Substance: TIRZEPATIDE
     Indication: Type 2 diabetes mellitus
     Dosage: 12.5 MG, UNKNOWN
     Route: 058
  35. MOUNJARO [Interacting]
     Active Substance: TIRZEPATIDE
     Indication: Type 2 diabetes mellitus
     Dosage: 12.5 MG, UNKNOWN
     Route: 058
  36. MOUNJARO [Interacting]
     Active Substance: TIRZEPATIDE
     Indication: Type 2 diabetes mellitus
     Dosage: 12.5 MG, UNKNOWN
     Route: 058
  37. MOUNJARO [Interacting]
     Active Substance: TIRZEPATIDE
     Indication: Glycosylated haemoglobin
  38. MOUNJARO [Interacting]
     Active Substance: TIRZEPATIDE
     Indication: Glycosylated haemoglobin
  39. MOUNJARO [Interacting]
     Active Substance: TIRZEPATIDE
     Indication: Glycosylated haemoglobin
  40. MOUNJARO [Interacting]
     Active Substance: TIRZEPATIDE
     Indication: Glycosylated haemoglobin
  41. MOUNJARO [Interacting]
     Active Substance: TIRZEPATIDE
     Indication: Type 2 diabetes mellitus
     Dosage: 15 MG, UNKNOWN
     Route: 058
  42. MOUNJARO [Interacting]
     Active Substance: TIRZEPATIDE
     Indication: Type 2 diabetes mellitus
     Dosage: 15 MG, UNKNOWN
     Route: 058
  43. MOUNJARO [Interacting]
     Active Substance: TIRZEPATIDE
     Indication: Type 2 diabetes mellitus
     Dosage: 15 MG, UNKNOWN
     Route: 058
  44. MOUNJARO [Interacting]
     Active Substance: TIRZEPATIDE
     Indication: Type 2 diabetes mellitus
     Dosage: 15 MG, UNKNOWN
     Route: 058
  45. MOUNJARO [Interacting]
     Active Substance: TIRZEPATIDE
     Indication: Glycosylated haemoglobin
  46. MOUNJARO [Interacting]
     Active Substance: TIRZEPATIDE
     Indication: Glycosylated haemoglobin
  47. MOUNJARO [Interacting]
     Active Substance: TIRZEPATIDE
     Indication: Glycosylated haemoglobin
  48. MOUNJARO [Interacting]
     Active Substance: TIRZEPATIDE
     Indication: Glycosylated haemoglobin
  49. EXEMESTANE [Interacting]
     Active Substance: EXEMESTANE
     Indication: Antioestrogen therapy
     Dosage: UNK UNK, UNKNOWN
     Route: 065
  50. TAMOXIFEN [Interacting]
     Active Substance: TAMOXIFEN
     Indication: Antioestrogen therapy
     Dosage: UNK UNK, UNKNOWN
     Route: 065
  51. LETROZOLE [Interacting]
     Active Substance: LETROZOLE
     Indication: Antioestrogen therapy
     Dosage: UNK UNK, UNKNOWN
     Route: 065
  52. ANASTROZOLE [Interacting]
     Active Substance: ANASTROZOLE
     Indication: Antioestrogen therapy
     Dosage: UNK UNK, UNKNOWN
     Route: 065

REACTIONS (7)
  - Vision blurred [Unknown]
  - Headache [Unknown]
  - Drug interaction [Unknown]
  - Night sweats [Unknown]
  - Blood glucose decreased [Recovered/Resolved]
  - Weight increased [Unknown]
  - Blood glucose decreased [Not Recovered/Not Resolved]

NARRATIVE: CASE EVENT DATE: 20230701
